FAERS Safety Report 8735974 (Version 2)
Quarter: 2012Q4

REPORT INFORMATION
  Report Type: 
  Country: FR (occurrence: FR)
  Receive Date: 20120822
  Receipt Date: 20120906
  Transmission Date: 20130627
  Serious: Yes (Death, Hospitalization)
  Sender: FDA-Public Use
  Company Number: FR-MILLENNIUM PHARMACEUTICALS, INC.-2012-05731

PATIENT

DRUGS (27)
  1. VELCADE [Suspect]
     Indication: MANTLE CELL LYMPHOMA
     Dosage: 2.6 mg, qd
     Route: 058
     Dates: start: 20120529, end: 20120608
  2. LEVACT [Suspect]
     Indication: MANTLE CELL LYMPHOMA
     Dosage: 180 mg, qd
     Route: 042
     Dates: start: 20120529, end: 20120530
  3. MABTHERA [Suspect]
     Indication: MANTLE CELL LYMPHOMA
     Dosage: 750 mg, UNK
     Route: 042
     Dates: start: 20120529, end: 20120529
  4. DEXAMETHASONE [Suspect]
     Indication: MANTLE CELL LYMPHOMA
     Dosage: 40 mg, UNK
     Route: 042
     Dates: start: 20120530, end: 20120530
  5. INEXIUM /01479302/ [Concomitant]
     Dosage: 20 mg, UNK
  6. ZELITREX                           /01269701/ [Concomitant]
  7. BACTRIM [Concomitant]
  8. SEROPRAM                           /00582602/ [Concomitant]
     Dosage: 20 mg, UNK
  9. SPECIAFOLDINE [Concomitant]
     Dosage: 5 mg, UNK
  10. DUPHALAC                           /00163401/ [Concomitant]
  11. IMOVANE [Concomitant]
  12. COLCHICINE [Concomitant]
     Dosage: 1 UNK, UNK
  13. XANAX [Concomitant]
     Indication: ANXIETY
  14. VENTOLINE                          /00139501/ [Concomitant]
  15. ROCEPHIN                           /00672201/ [Concomitant]
  16. ACTRAPID                           /00030501/ [Concomitant]
     Route: 042
  17. ALBUMIN [Concomitant]
  18. ATARAX                             /00058401/ [Concomitant]
     Dosage: 100 mg, UNK
  19. LASILIX                            /00032601/ [Concomitant]
     Dosage: 80 mg, UNK
  20. MAGNESIUM SULFATE [Concomitant]
  21. TRANXENE [Concomitant]
  22. SERESTA [Concomitant]
  23. TRIATEC                            /00885601/ [Concomitant]
  24. GLUCOPHAGE                         /00082701/ [Concomitant]
  25. PREVISCAN                          /00261401/ [Concomitant]
  26. FASTURTEC [Concomitant]
     Indication: TUMOUR LYSIS SYNDROME
  27. LASILIX                            /00032601/ [Concomitant]

REACTIONS (1)
  - Bronchopneumonia [Fatal]
